FAERS Safety Report 25758410 (Version 2)
Quarter: 2025Q4

REPORT INFORMATION
  Report Type: Report from Study
  Country: US (occurrence: US)
  Receive Date: 20250904
  Receipt Date: 20251008
  Transmission Date: 20260117
  Serious: Yes (Hospitalization, Other)
  Sender: JOHNSON AND JOHNSON
  Company Number: US-JNJFOC-20250709482

PATIENT
  Age: 1 Decade
  Sex: Male
  Weight: 8.165 kg

DRUGS (5)
  1. TRACLEER [Suspect]
     Active Substance: BOSENTAN
     Indication: Pulmonary hypertension
     Route: 048
     Dates: start: 2024
  2. TRACLEER [Suspect]
     Active Substance: BOSENTAN
     Indication: Pulmonary hypertension
     Route: 048
     Dates: start: 202412, end: 202508
  3. TRACLEER [Suspect]
     Active Substance: BOSENTAN
     Route: 048
     Dates: start: 202412, end: 202508
  4. SILDENAFIL CITRATE [Concomitant]
     Active Substance: SILDENAFIL CITRATE
     Indication: Pulmonary hypertension
  5. HYDROCHLOROTHIAZIDE [Concomitant]
     Active Substance: HYDROCHLOROTHIAZIDE
     Indication: Bronchopulmonary dysplasia

REACTIONS (4)
  - Bronchopulmonary dysplasia [Recovered/Resolved]
  - Pulmonary hypertension [Recovered/Resolved]
  - Premature baby [Recovered/Resolved]
  - Hepatic enzyme increased [Recovering/Resolving]

NARRATIVE: CASE EVENT DATE: 20240606
